FAERS Safety Report 5226244-7 (Version None)
Quarter: 2007Q1

REPORT INFORMATION
  Report Type: 
  Country: None (occurrence: None)
  Receive Date: 20070201
  Receipt Date: 20070123
  Transmission Date: 20070707
  Serious: Yes (Other)
  Sender: FDA-Public Use
  Company Number: US-AMGEN-US208068

PATIENT

DRUGS (1)
  1. ETANERCEPT [Suspect]
     Indication: ARTHRITIS

REACTIONS (1)
  - COCCIDIOIDOMYCOSIS [None]
